FAERS Safety Report 21583101 (Version 1)
Quarter: 2022Q4

REPORT INFORMATION
  Report Type: Spontaneous
  Country: TH (occurrence: TH)
  Receive Date: 20221111
  Receipt Date: 20221111
  Transmission Date: 20230113
  Serious: Yes (Death, Life-Threatening, Hospitalization, Other)
  Sender: FDA-Public Use
  Company Number: None

PATIENT
  Age: 51 Year
  Sex: Male

DRUGS (3)
  1. AZATHIOPRINE [Suspect]
     Active Substance: AZATHIOPRINE
     Indication: Autoimmune hepatitis
     Dosage: 50 MILLIGRAM PER DAY
     Route: 065
  2. PREDNISOLONE [Suspect]
     Active Substance: PREDNISOLONE
     Indication: Autoimmune hepatitis
     Dosage: 30 MILLIGRAM PER DAY
     Route: 065
  3. TENOFOVIR DISOPROXIL FUMARATE [Suspect]
     Active Substance: TENOFOVIR DISOPROXIL FUMARATE
     Indication: Autoimmune hepatitis
     Dosage: 300 MILLIGRAM PER DAY
     Route: 065

REACTIONS (9)
  - Aneurysm ruptured [Fatal]
  - Pneumococcal sepsis [Fatal]
  - Septic shock [Fatal]
  - Cerebral infarction [Fatal]
  - Coma [Fatal]
  - Cerebral haemorrhage [Fatal]
  - Nocardiosis [Fatal]
  - Cerebral artery thrombosis [Fatal]
  - Intracranial pressure increased [Fatal]
